FAERS Safety Report 11189781 (Version 1)
Quarter: 2015Q2

REPORT INFORMATION
  Report Type: Spontaneous
  Country: FR (occurrence: FR)
  Receive Date: 20150615
  Receipt Date: 20150615
  Transmission Date: 20150821
  Serious: Yes (Life-Threatening, Hospitalization, Other)
  Sender: FDA-Public Use
  Company Number: FR-ELI_LILLY_AND_COMPANY-FR201506000352

PATIENT
  Sex: Female
  Weight: 65 kg

DRUGS (6)
  1. AVLOCARDYL                         /00030001/ [Concomitant]
     Active Substance: PROPRANOLOL HYDROCHLORIDE
     Dosage: UNK, BID
     Route: 065
     Dates: end: 20150224
  2. LEXOMIL [Concomitant]
     Active Substance: BROMAZEPAM
     Dosage: UNK, UNKNOWN
     Route: 065
     Dates: end: 20150224
  3. CYMBALTA [Suspect]
     Active Substance: DULOXETINE HYDROCHLORIDE
     Indication: PRODUCT USED FOR UNKNOWN INDICATION
     Dosage: UNK, UNKNOWN
     Route: 065
     Dates: end: 20150224
  4. SERESTA [Concomitant]
     Active Substance: OXAZEPAM
     Dosage: UNK, BID
     Route: 065
     Dates: end: 20150224
  5. COAPROVEL [Suspect]
     Active Substance: HYDROCHLOROTHIAZIDE\IRBESARTAN
     Indication: PRODUCT USED FOR UNKNOWN INDICATION
     Dosage: UNK, UNKNOWN
     Route: 065
     Dates: end: 20150224
  6. ZOPICLONE [Concomitant]
     Active Substance: ZOPICLONE
     Dosage: UNK, UNKNOWN
     Route: 065
     Dates: end: 20150224

REACTIONS (20)
  - Hepatic function abnormal [Unknown]
  - Abnormal behaviour [Unknown]
  - Communication disorder [Unknown]
  - Hyponatraemia [Recovered/Resolved]
  - Areflexia [Recovering/Resolving]
  - Status epilepticus [Recovering/Resolving]
  - Agitation [Recovering/Resolving]
  - Livedo reticularis [Unknown]
  - Muscle spasticity [Recovering/Resolving]
  - Hypertonia [Recovering/Resolving]
  - Hypotension [Recovered/Resolved]
  - Hypokalaemia [Recovered/Resolved]
  - Delirium tremens [Unknown]
  - Demyelination [Recovering/Resolving]
  - Somnolence [Recovering/Resolving]
  - Hyperammonaemia [Unknown]
  - Metabolic encephalopathy [Recovering/Resolving]
  - Metabolic alkalosis [Unknown]
  - Apraxia [Unknown]
  - Trismus [Recovering/Resolving]
